FAERS Safety Report 23947654 (Version 1)
Quarter: 2024Q2

REPORT INFORMATION
  Report Type: Spontaneous
  Country: JP (occurrence: JP)
  Receive Date: 20240606
  Receipt Date: 20240606
  Transmission Date: 20240716
  Serious: Yes (Death, Other)
  Sender: FDA-Public Use
  Company Number: JP-TAKEDA-2024TJP008245

PATIENT
  Sex: Male

DRUGS (32)
  1. LEUPROLIDE ACETATE [Suspect]
     Active Substance: ISOPROPYL ALCOHOL\LEUPROLIDE ACETATE
     Indication: Bulbospinal muscular atrophy congenital
     Dosage: 11.25 MILLIGRAM, Q3MONTHS?LEUPLIN SR FOR INJECTION KIT 11.25 MG
     Route: 058
     Dates: start: 20210113, end: 20230726
  2. LOXOPROFEN SODIUM [Concomitant]
     Active Substance: LOXOPROFEN SODIUM
     Indication: Toothache
     Dosage: 60 MILLIGRAM
     Route: 065
     Dates: start: 20210728, end: 20211117
  3. SENNOSIDES A AND B [Concomitant]
     Active Substance: SENNOSIDES A AND B
     Indication: Product used for unknown indication
     Dosage: 24 MILLIGRAM
     Route: 065
     Dates: start: 20220209, end: 20220601
  4. MAGNESIUM OXIDE [Concomitant]
     Active Substance: MAGNESIUM OXIDE
     Indication: Product used for unknown indication
     Dosage: 660 MILLIGRAM
     Route: 065
     Dates: start: 20220309
  5. VITAMINS NOS [Concomitant]
     Active Substance: VITAMINS
     Indication: Product used for unknown indication
     Dosage: 10 MICROGRAM
     Route: 065
  6. PANCRELIPASE [Concomitant]
     Active Substance: PANCRELIPASE
     Indication: Product used for unknown indication
     Dosage: 2 DOSAGE FORM
     Route: 065
  7. MOSAPRIDE CITRATE [Concomitant]
     Active Substance: MOSAPRIDE CITRATE
     Indication: Product used for unknown indication
     Dosage: 10 MILLIGRAM
     Route: 065
  8. ICOSAPENT ETHYL [Concomitant]
     Active Substance: ICOSAPENT ETHYL
     Indication: Product used for unknown indication
     Dosage: 1800 MILLIGRAM
     Route: 065
     Dates: start: 20211020
  9. BETAHISTINE MESILATE [Concomitant]
     Active Substance: BETAHISTINE MESILATE
     Indication: Bulbospinal muscular atrophy congenital
     Dosage: 12 MILLIGRAM
     Route: 065
     Dates: start: 20220511, end: 20220629
  10. MIROGABALIN BESYLATE [Concomitant]
     Active Substance: MIROGABALIN BESYLATE
     Indication: Bulbospinal muscular atrophy congenital
     Dosage: 15 MILLIGRAM
     Route: 065
     Dates: start: 20201209, end: 20230725
  11. MIROGABALIN BESYLATE [Concomitant]
     Active Substance: MIROGABALIN BESYLATE
     Indication: Bulbospinal muscular atrophy congenital
     Dosage: 10 MILLIGRAM
     Route: 065
     Dates: start: 20230726
  12. MIROGABALIN BESYLATE [Concomitant]
     Active Substance: MIROGABALIN BESYLATE
     Indication: Bulbospinal muscular atrophy congenital
     Dosage: 2.5 MILLIGRAM
     Route: 065
     Dates: start: 20201014, end: 20201110
  13. MIROGABALIN BESYLATE [Concomitant]
     Active Substance: MIROGABALIN BESYLATE
     Indication: Bulbospinal muscular atrophy congenital
     Dosage: 10 MILLIGRAM
     Route: 065
     Dates: start: 20201111, end: 20201208
  14. PEMAFIBRATE [Concomitant]
     Active Substance: PEMAFIBRATE
     Indication: Product used for unknown indication
     Dosage: 0.2 MILLIGRAM
     Route: 065
     Dates: start: 20210512, end: 20210824
  15. PURSENNID [Concomitant]
     Indication: Product used for unknown indication
     Dosage: 24 MILLIGRAM
     Route: 065
     Dates: start: 20201014, end: 20210113
  16. HYPEN [Concomitant]
     Indication: Bulbospinal muscular atrophy congenital
     Dosage: 200 MILLIGRAM
     Route: 065
     Dates: start: 20200909, end: 20220727
  17. FELBINAC [Concomitant]
     Active Substance: FELBINAC
     Indication: Bulbospinal muscular atrophy congenital
     Dosage: 40 GRAM
     Route: 065
     Dates: start: 20230726
  18. CALONAL [Concomitant]
     Active Substance: ACETAMINOPHEN
     Indication: Prophylaxis
     Dosage: 600 MILLIGRAM
     Route: 065
     Dates: start: 20210602, end: 20210602
  19. CALONAL [Concomitant]
     Active Substance: ACETAMINOPHEN
     Indication: Prophylaxis
     Dosage: 600 MILLIGRAM
     Route: 065
     Dates: start: 20230919, end: 20230925
  20. CANDESARTAN CILEXETIL [Concomitant]
     Active Substance: CANDESARTAN CILEXETIL
     Indication: Product used for unknown indication
     Dosage: 8 MILLIGRAM
     Route: 065
  21. AMBROXOL HYDROCHLORIDE [Concomitant]
     Active Substance: AMBROXOL HYDROCHLORIDE
     Indication: Product used for unknown indication
     Dosage: 45 MILLIGRAM
     Route: 065
  22. BENIDIPINE HYDROCHLORIDE [Concomitant]
     Active Substance: BENIDIPINE HYDROCHLORIDE
     Indication: Product used for unknown indication
     Dosage: 4 MILLIGRAM
     Route: 065
  23. KETOPROFEN [Concomitant]
     Active Substance: KETOPROFEN
     Indication: Bulbospinal muscular atrophy congenital
     Dosage: 40 MILLIGRAM
     Route: 065
     Dates: start: 20221214
  24. TRAZODONE HYDROCHLORIDE [Concomitant]
     Active Substance: TRAZODONE HYDROCHLORIDE
     Indication: Product used for unknown indication
     Dosage: 50 MILLIGRAM
     Route: 065
     Dates: start: 20220824
  25. TRAZODONE HYDROCHLORIDE [Concomitant]
     Active Substance: TRAZODONE HYDROCHLORIDE
     Indication: Product used for unknown indication
     Dosage: 25 MILLIGRAM
     Route: 065
     Dates: end: 20230725
  26. TRAZODONE HYDROCHLORIDE [Concomitant]
     Active Substance: TRAZODONE HYDROCHLORIDE
     Indication: Product used for unknown indication
     Dosage: 50 MILLIGRAM, FIRST ADMIN DATE: 26 JUL 2023
     Route: 065
  27. TRAZODONE HYDROCHLORIDE [Concomitant]
     Active Substance: TRAZODONE HYDROCHLORIDE
     Indication: Product used for unknown indication
     Dosage: 50 MILLIGRAM
     Route: 065
     Dates: start: 20200909, end: 20201111
  28. TRAZODONE HYDROCHLORIDE [Concomitant]
     Active Substance: TRAZODONE HYDROCHLORIDE
     Indication: Product used for unknown indication
     Dosage: 25 MILLIGRAM
     Route: 065
     Dates: start: 20200811, end: 20200908
  29. TRAZODONE HYDROCHLORIDE [Concomitant]
     Active Substance: TRAZODONE HYDROCHLORIDE
     Indication: Product used for unknown indication
     Dosage: 50 MILLIGRAM
     Route: 065
     Dates: start: 20220727, end: 20220823
  30. BROTIZOLAM [Concomitant]
     Active Substance: BROTIZOLAM
     Indication: Product used for unknown indication
     Dosage: 0.25 MILLIGRAM
     Route: 065
  31. CELECOXIB [Concomitant]
     Active Substance: CELECOXIB
     Indication: Bulbospinal muscular atrophy congenital
     Dosage: 400 MILLIGRAM
     Route: 065
     Dates: start: 20220727, end: 20230725
  32. CELECOXIB [Concomitant]
     Active Substance: CELECOXIB
     Indication: Bulbospinal muscular atrophy congenital
     Dosage: 200 MILLIGRAM
     Route: 065
     Dates: start: 20230726

REACTIONS (1)
  - Death [Fatal]
